FAERS Safety Report 12433081 (Version 1)
Quarter: 2016Q2

REPORT INFORMATION
  Report Type: Spontaneous
  Country: TR (occurrence: TR)
  Receive Date: 20160603
  Receipt Date: 20160603
  Transmission Date: 20160815
  Serious: Yes (Other)
  Sender: FDA-Public Use
  Company Number: TR-009507513-1606TUR000573

PATIENT
  Age: 50 Year
  Sex: Female

DRUGS (3)
  1. DACARBAZINE. [Suspect]
     Active Substance: DACARBAZINE
     Indication: MELANOMA RECURRENT
     Dosage: 300 MG/M2, CYCLICAL (DAYS 1-3 EVERY 21 DAYS)
  2. INTERFERON ALFA-2B [Suspect]
     Active Substance: INTERFERON ALFA-2B
     Indication: MELANOMA RECURRENT
     Dosage: 5 MU, Q3W
     Route: 058
  3. CISPLATIN. [Suspect]
     Active Substance: CISPLATIN
     Indication: MELANOMA RECURRENT
     Dosage: 30 MG/M2, CYCLICAL, DAYS 1-3 EVERY 21 DAYS

REACTIONS (2)
  - Autoimmune hypothyroidism [Unknown]
  - Vitiligo [Unknown]
